FAERS Safety Report 4417853-3 (Version None)
Quarter: 2004Q3

REPORT INFORMATION
  Report Type: 
  Country: None (occurrence: None)
  Receive Date: 20040803
  Receipt Date: 20040722
  Transmission Date: 20050211
  Serious: Yes (Hospitalization)
  Sender: FDA-Public Use
  Company Number: 2004SE04207

PATIENT
  Age: 80 Year
  Sex: Male

DRUGS (9)
  1. NEXIUM [Suspect]
     Indication: GASTRIC DISORDER
     Dosage: 40 MG DAILY PO
     Route: 048
     Dates: start: 20040624, end: 20040702
  2. APURIN [Suspect]
     Indication: GOUT
     Dosage: 300 MG DAILY PO
     Route: 048
     Dates: end: 20040705
  3. ARCOXIA [Suspect]
     Indication: ARTHRALGIA
     Dosage: 120 MG PRN PO
     Route: 048
     Dates: start: 20030101, end: 20040629
  4. DIGOXIN [Concomitant]
  5. SEROPRAL [Concomitant]
  6. NITROSID [Concomitant]
  7. PREDNISOLONE [Concomitant]
  8. MAREVAN [Concomitant]
  9. ACETAMINOPHEN [Concomitant]

REACTIONS (5)
  - BONE MARROW DEPRESSION [None]
  - C-REACTIVE PROTEIN INCREASED [None]
  - ORAL MUCOSAL BLISTERING [None]
  - PANCYTOPENIA [None]
  - PYREXIA [None]
